FAERS Safety Report 7324405-4 (Version None)
Quarter: 2011Q1

REPORT INFORMATION
  Report Type: 
  Country: None (occurrence: None)
  Receive Date: 20110301
  Receipt Date: 20110224
  Transmission Date: 20110831
  Serious: No
  Sender: FDA-Public Use
  Company Number: US-PFIZER INC-2011041219

PATIENT
  Sex: Male
  Weight: 99.773 kg

DRUGS (1)
  1. ADVIL CONGESTION RELIEF [Suspect]
     Indication: NASAL CONGESTION
     Dosage: 1 TABLET, FREQUENCY UNK
     Route: 048
     Dates: start: 20110201, end: 20110201

REACTIONS (1)
  - EPISTAXIS [None]
